FAERS Safety Report 12099932 (Version 3)
Quarter: 2016Q1

REPORT INFORMATION
  Report Type: Report from Study
  Country: US (occurrence: US)
  Receive Date: 20160222
  Receipt Date: 20160226
  Transmission Date: 20160526
  Serious: Yes (Life-Threatening, Hospitalization)
  Sender: FDA-Public Use
  Company Number: US-JNJFOC-20160211732

PATIENT
  Age: 25 Year
  Sex: Female
  Weight: 73 kg

DRUGS (3)
  1. APAP [Suspect]
     Active Substance: ACETAMINOPHEN
     Indication: DYSURIA
     Dosage: DOSE: 4000 MG OR LESS
     Route: 048
  2. APAP [Suspect]
     Active Substance: ACETAMINOPHEN
     Indication: ABDOMINAL PAIN
     Dosage: DOSE: 4000 MG OR LESS
     Route: 048
  3. APAP [Suspect]
     Active Substance: ACETAMINOPHEN
     Indication: VOMITING
     Dosage: DOSE: 4000 MG OR LESS
     Route: 048

REACTIONS (9)
  - Bacterial pyelonephritis [Unknown]
  - Acute respiratory failure [Unknown]
  - Product use issue [Unknown]
  - Pancreatitis [Not Recovered/Not Resolved]
  - Off label use [Unknown]
  - Shock [Unknown]
  - Sepsis [Unknown]
  - Hepatic function abnormal [Not Recovered/Not Resolved]
  - Liver function test abnormal [Unknown]

NARRATIVE: CASE EVENT DATE: 201510
